FAERS Safety Report 22111675 (Version 3)
Quarter: 2023Q2

REPORT INFORMATION
  Report Type: Spontaneous
  Country: US (occurrence: US)
  Receive Date: 20230318
  Receipt Date: 20230504
  Transmission Date: 20230722
  Serious: Yes (Other)
  Sender: FDA-Public Use
  Company Number: US-BoehringerIngelheim-2023-BI-225921

PATIENT
  Age: 77 Year
  Sex: Female
  Weight: 68.66 kg

DRUGS (15)
  1. LINAGLIPTIN [Suspect]
     Active Substance: LINAGLIPTIN
     Indication: Product used for unknown indication
     Route: 048
     Dates: start: 20200819
  2. EZETIMIBE [Concomitant]
     Active Substance: EZETIMIBE
     Indication: Product used for unknown indication
     Route: 048
  3. ferrous sulfate 325mg (65 mg iron) tablet [Concomitant]
     Indication: Product used for unknown indication
     Dosage: 325MG (65 MG IRON)
     Route: 048
  4. GABAPENTIN [Concomitant]
     Active Substance: GABAPENTIN
     Indication: Product used for unknown indication
     Dosage: AT BEDTIME
     Route: 048
  5. ipratropium bromide 0.02% solution for inhalation [Concomitant]
     Indication: Product used for unknown indication
     Dosage: 0.02% 1 VIAL NEBULIZER 4 TIMES A DAILY AS NEEDED.
  6. LISINOPRIL [Concomitant]
     Active Substance: LISINOPRIL
     Indication: Product used for unknown indication
     Route: 048
  7. magnesium oxide 500 mg capsule [Concomitant]
     Indication: Product used for unknown indication
     Dosage: FOR 90 DAYS
     Route: 048
  8. METHYLPREDNISOLONE [Concomitant]
     Active Substance: METHYLPREDNISOLONE
     Indication: Product used for unknown indication
     Dosage: TAKE AS DIRECTED
     Route: 048
  9. METOPROLOL TARTRATE [Concomitant]
     Active Substance: METOPROLOL TARTRATE
     Indication: Product used for unknown indication
     Route: 048
  10. MONTELUKAST SODIUM [Concomitant]
     Active Substance: MONTELUKAST SODIUM
     Indication: Product used for unknown indication
     Dosage: AT BEDTIME
     Route: 048
  11. Naphcon-A 0.025 % eye drops [Concomitant]
     Indication: Product used for unknown indication
     Dosage: 0.025 %
  12. OMEPRAZOLE [Concomitant]
     Active Substance: OMEPRAZOLE
     Indication: Product used for unknown indication
     Dosage: 30 MIN BEFORE BREAKFAST AS NEEDED
     Route: 048
  13. PIOGLITAZONE [Concomitant]
     Active Substance: PIOGLITAZONE
     Indication: Product used for unknown indication
     Dosage: AT BEDTIME
     Route: 048
  14. symbicort 8- mcg- 4.5 mcg/actuation HFA aerosol inhaler [Concomitant]
     Indication: Asthma
     Dosage: 8- MCG- 4.5 MCG/ INHALE 2 PUFF. RINSE MOUTH AFTER USE. FOR 30 DAYS
     Route: 048
  15. pravastatine 40 mg tab [Concomitant]
     Indication: Product used for unknown indication
     Dosage: EVENING FOR 30 DAYS
     Route: 048

REACTIONS (10)
  - End stage renal disease [Unknown]
  - Renal impairment [Not Recovered/Not Resolved]
  - Type 2 diabetes mellitus [Unknown]
  - Diabetic neuropathy [Unknown]
  - Vitamin D deficiency [Unknown]
  - Gout [Unknown]
  - Anaemia [Unknown]
  - Essential hypertension [Unknown]
  - Chronic kidney disease [Unknown]
  - Proteinuria [Unknown]

NARRATIVE: CASE EVENT DATE: 20230316
